FAERS Safety Report 9680055 (Version 1)
Quarter: 2013Q4

REPORT INFORMATION
  Report Type: Report from Study
  Country: DE (occurrence: DE)
  Receive Date: 20131110
  Receipt Date: 20131110
  Transmission Date: 20140711
  Serious: Yes (Death)
  Sender: FDA-Public Use
  Company Number: DE-ROCHE-1300352

PATIENT
  Age: 52 Year
  Sex: Male
  Weight: 79.8 kg

DRUGS (5)
  1. BEVACIZUMAB [Suspect]
     Indication: RECTAL CANCER
     Route: 042
     Dates: start: 20130430, end: 20130430
  2. 5-FU [Suspect]
     Indication: RECTAL CANCER
     Route: 042
     Dates: start: 20130430, end: 20130430
  3. FOLIC ACID [Suspect]
     Indication: RECTAL CANCER
     Route: 042
     Dates: start: 20130430, end: 20130430
  4. DEXAMETHASONE [Concomitant]
     Route: 042
     Dates: start: 20130430
  5. KEVATRIL [Concomitant]
     Route: 042
     Dates: start: 20130430

REACTIONS (1)
  - Renal failure acute [Fatal]
